FAERS Safety Report 14193742 (Version 12)
Quarter: 2019Q3

REPORT INFORMATION
  Report Type: Report from Study
  Country: CA (occurrence: CA)
  Receive Date: 20171115
  Receipt Date: 20190828
  Transmission Date: 20191004
  Serious: Yes (Death, Hospitalization)
  Sender: FDA-Public Use
  Company Number: CA-HLSUS-2017-CA-001127

PATIENT
  Age: 50 Year
  Sex: Male
  Weight: 72 kg

DRUGS (1)
  1. CLOZARIL [Suspect]
     Active Substance: CLOZAPINE
     Indication: SCHIZOPHRENIA
     Route: 048
     Dates: start: 20090729

REACTIONS (8)
  - Neutrophilia [Unknown]
  - Leukopenia [Unknown]
  - Death [Fatal]
  - Neutropenia [Unknown]
  - Non-small cell lung cancer [Unknown]
  - Vomiting [Unknown]
  - Haemorrhage [Unknown]
  - White blood cell count increased [Unknown]

NARRATIVE: CASE EVENT DATE: 20171212
